FAERS Safety Report 9989829 (Version 1)
Quarter: 2013Q4

REPORT INFORMATION
  Report Type: Spontaneous
  Country: IT (occurrence: None)
  Receive Date: 20131113
  Receipt Date: 20131113
  Transmission Date: 20140711
  Serious: Yes (Hospitalization)
  Sender: FDA-Public Use
  Company Number: B0784843A

PATIENT
  Age: 5 Year
  Sex: Male

DRUGS (5)
  1. VENTOLIN HFA [Suspect]
     Indication: BRONCHITIS
     Route: 055
     Dates: start: 20101128, end: 20101201
  2. AMOX. TRIHYD+POT. CLAVULAN. TABLET (AUGMENTIN) [Suspect]
     Indication: RESPIRATORY TRACT INFECTION
     Route: 048
  3. FLUTICASONE PROPIONATE [Concomitant]
  4. BETAMETHASONE [Concomitant]
  5. TOBRAMYCIN [Concomitant]

REACTIONS (1)
  - Stevens-Johnson syndrome [None]
